FAERS Safety Report 7356947 (Version 5)
Quarter: 2013Q1

REPORT INFORMATION
  Report Type: Report from Study
  Country: None (occurrence: US)
  Receive Date: 20100416
  Receipt Date: 20130314
  Transmission Date: 20140127
  Serious: Yes (Other)
  Sender: FDA-Public Use
  Company Number: US-RB-005979-10

PATIENT
  Age: 44 Year
  Sex: Female

DRUGS (5)
  1. SUBOXONE [Suspect]
     Indication: DRUG DEPENDENCE
     Route: 060
     Dates: start: 20100329, end: 20100404
  2. SUBOXONE [Suspect]
     Route: 060
     Dates: start: 20100405, end: 20100405
  3. SUBOXONE [Suspect]
     Route: 060
     Dates: start: 20100406, end: 201103
  4. CAFFEINE [Suspect]
     Indication: PRODUCT USED FOR UNKNOWN INDICATION
     Dosage: DOSING DETAILS UNKNOWN
     Route: 065
  5. LEXAPRO [Concomitant]
     Indication: DEPRESSION
     Dosage: DOSING DETAILS UNKNOWN
     Route: 065

REACTIONS (20)
  - Blood pressure decreased [Recovered/Resolved]
  - Dysphagia [Recovered/Resolved]
  - Nausea [Not Recovered/Not Resolved]
  - Feeling jittery [Not Recovered/Not Resolved]
  - Somnolence [Recovered/Resolved]
  - Miosis [Recovered/Resolved]
  - Headache [Not Recovered/Not Resolved]
  - Dizziness [Not Recovered/Not Resolved]
  - Feeling abnormal [Not Recovered/Not Resolved]
  - Speech disorder [Not Recovered/Not Resolved]
  - Hallucinations, mixed [Not Recovered/Not Resolved]
  - Oedema peripheral [Recovered/Resolved]
  - Weight increased [Not Recovered/Not Resolved]
  - Food craving [Recovered/Resolved]
  - Face oedema [Not Recovered/Not Resolved]
  - Delusion [Not Recovered/Not Resolved]
  - Drug dependence [Recovered/Resolved]
  - Lip swelling [Not Recovered/Not Resolved]
  - Insomnia [Recovered/Resolved]
  - Arthralgia [Recovered/Resolved]
